FAERS Safety Report 9178690 (Version 1)
Quarter: 2012Q4

REPORT INFORMATION
  Report Type: 
  Country: US (occurrence: US)
  Receive Date: 20121029
  Receipt Date: 20121029
  Transmission Date: 20130627
  Serious: No
  Sender: FDA-Public Use
  Company Number: US-AMGEN-USASP2012053441

PATIENT
  Sex: Female
  Weight: 54.42 kg

DRUGS (13)
  1. ENBREL [Suspect]
     Indication: PRODUCT USED FOR UNKNOWN INDICATION
     Dosage: 50 mg, qwk
     Route: 058
  2. PANTOPRAZOLE [Concomitant]
     Dosage: 40 mg, UNK
  3. RESTASIS [Concomitant]
     Dosage: 0.05 %, UNK
  4. SOMA [Concomitant]
     Dosage: 250 mg, UNK
  5. AMLODIPINE [Concomitant]
     Dosage: 2.5 mg, UNK
  6. MELOXICAM [Concomitant]
     Dosage: 15 mg, UNK
  7. ARAVA [Concomitant]
     Dosage: 10 mg, UNK
  8. PRAVASTATIN [Concomitant]
     Dosage: 80 mg, UNK
  9. ASPIRIN [Concomitant]
     Dosage: 81 mg, UNK
  10. METOPROLOL [Concomitant]
     Dosage: 100 mg, UNK
  11. KLOR-CON [Concomitant]
     Dosage: 10 mEq, UNK
  12. VITAMIN D /00107901/ [Concomitant]
     Dosage: 1000 unit, UNK
  13. PERCOCET                           /00446701/ [Concomitant]
     Dosage: UNK

REACTIONS (2)
  - Bone deformity [Unknown]
  - Back pain [Unknown]
